FAERS Safety Report 7957810-3 (Version None)
Quarter: 2011Q4

REPORT INFORMATION
  Report Type: 
  Country: None (occurrence: None)
  Receive Date: 20111205
  Receipt Date: 20111128
  Transmission Date: 20120403
  Serious: Yes (Hospitalization, Other)
  Sender: FDA-Public Use
  Company Number: US-ABBOTT-11P-163-0878150-00

PATIENT
  Sex: Male
  Weight: 104.42 kg

DRUGS (11)
  1. ASPIRIN [Concomitant]
     Indication: CARDIAC DISORDER
     Dosage: 81 MG DAILY
  2. LIPITOR [Concomitant]
     Indication: BLOOD CHOLESTEROL
  3. TRICOR [Concomitant]
     Indication: BLOOD CHOLESTEROL
  4. MYCOPHENOLATE MOFETIL (CELLCEPT) [Concomitant]
     Indication: PROPHYLAXIS AGAINST TRANSPLANT REJECTION
  5. MULTIPLE VITAMINS [Concomitant]
     Indication: VITAMIN SUPPLEMENTATION
  6. ZOLOFT [Concomitant]
     Indication: DEPRESSION
  7. ANDROGEL [Suspect]
     Indication: BLOOD TESTOSTERONE DECREASED
     Dates: start: 20080101, end: 20110902
  8. FISH OIL [Concomitant]
     Indication: BLOOD CHOLESTEROL
  9. SIROLIMUS [Concomitant]
     Indication: VITAMIN SUPPLEMENTATION
  10. AMBIEN [Concomitant]
     Indication: INSOMNIA
  11. LISINOPRIL [Concomitant]
     Indication: BLOOD PRESSURE

REACTIONS (10)
  - DIZZINESS [None]
  - PAIN [None]
  - POST PROCEDURAL HAEMATOMA [None]
  - ASTHENIA [None]
  - PULMONARY EMBOLISM [None]
  - HEART TRANSPLANT [None]
  - HAEMATOMA [None]
  - HOT FLUSH [None]
  - THROMBOSIS [None]
  - COUGH [None]
